FAERS Safety Report 6345931-0 (Version None)
Quarter: 2009Q3

REPORT INFORMATION
  Report Type: 
  Country: None (occurrence: None)
  Receive Date: 20090909
  Receipt Date: 20090831
  Transmission Date: 20100115
  Serious: Yes (Life-Threatening, Hospitalization)
  Sender: FDA-Public Use
  Company Number: B0590720A

PATIENT
  Sex: Female

DRUGS (3)
  1. SERETIDE [Suspect]
  2. CLOZAPINE [Suspect]
  3. TERCIAN [Suspect]

REACTIONS (1)
  - COLITIS ISCHAEMIC [None]
